FAERS Safety Report 8465434-7 (Version None)
Quarter: 2012Q2

REPORT INFORMATION
  Report Type: 
  Country: None (occurrence: None)
  Receive Date: 20120323
  Receipt Date: 20110926
  Transmission Date: 20120825
  Serious: Yes (Hospitalization, Other)
  Sender: FDA-Public Use
  Company Number: 163-21880-11093326

PATIENT
  Age: 72 Year
  Sex: Male

DRUGS (1)
  1. LENALIDOMIDE [Suspect]
     Indication: MULTIPLE MYELOMA
     Dosage: 10 MG, PO
     Route: 048
     Dates: start: 20110831

REACTIONS (3)
  - NEUROPATHY PERIPHERAL [None]
  - GROIN PAIN [None]
  - PERONEAL NERVE PALSY [None]
